FAERS Safety Report 4537171-2 (Version None)
Quarter: 2004Q4

REPORT INFORMATION
  Report Type: 
  Country: None (occurrence: None)
  Receive Date: 20041223
  Receipt Date: 20041217
  Transmission Date: 20050328
  Serious: Yes (Other)
  Sender: FDA-Public Use
  Company Number: PHBS2004JP17155

PATIENT

DRUGS (1)
  1. DIOVAN [Suspect]
     Dosage: 1280 MG, ONCE/SINGLE
     Route: 048
     Dates: start: 20041217, end: 20041217

REACTIONS (2)
  - DEPRESSED LEVEL OF CONSCIOUSNESS [None]
  - OVERDOSE [None]
